FAERS Safety Report 9379972 (Version 1)
Quarter: 2013Q3

REPORT INFORMATION
  Report Type: Spontaneous
  Country: US (occurrence: None)
  Receive Date: 20130701
  Receipt Date: 20130701
  Transmission Date: 20140515
  Serious: Yes (Other)
  Sender: FDA-Public Use
  Company Number: None

PATIENT
  Age: 68 Year
  Sex: Male

DRUGS (1)
  1. HUMIRA 40 MG EVERY OTHER WEEK [Suspect]
     Indication: PSORIASIS
     Dosage: 40 MG EVERY 2 WEEKS SUN Q
     Route: 058
     Dates: start: 20120707

REACTIONS (2)
  - Psoriasis [None]
  - Disease progression [None]
